FAERS Safety Report 7288983-6 (Version None)
Quarter: 2011Q1

REPORT INFORMATION
  Report Type: 
  Country: None (occurrence: None)
  Receive Date: 20110211
  Receipt Date: 20110203
  Transmission Date: 20110831
  Serious: Yes (Hospitalization)
  Sender: FDA-Public Use
  Company Number: JP-JNJFOC-20101208628

PATIENT
  Age: 83 Year
  Sex: Female

DRUGS (17)
  1. WARFARIN POTASSIUM [Interacting]
     Route: 048
  2. VERAPAMIL HCL [Concomitant]
  3. PLAVIX [Concomitant]
     Route: 048
  4. PROSULTIAMINE [Concomitant]
  5. ALFAROL [Concomitant]
     Route: 048
  6. METHYCOBAL [Concomitant]
  7. FLORID [Suspect]
     Indication: ORAL CANDIDIASIS
     Dosage: END DATE DEC-2010
     Route: 049
  8. WARFARIN POTASSIUM [Interacting]
     Indication: ILL-DEFINED DISORDER
     Route: 048
  9. WARFARIN POTASSIUM [Interacting]
     Route: 048
  10. RIZE [Concomitant]
     Route: 048
  11. FLORID [Suspect]
     Route: 049
  12. WARFARIN POTASSIUM [Interacting]
     Route: 048
  13. RIBOFLAVIN TAB [Concomitant]
     Route: 048
  14. PARIET [Concomitant]
     Route: 048
  15. BLOPRESS [Concomitant]
     Route: 048
  16. NEUQUINON [Concomitant]
     Route: 048
  17. MAINTATE [Concomitant]
     Route: 048

REACTIONS (3)
  - INTERNATIONAL NORMALISED RATIO INCREASED [None]
  - DRUG INTERACTION [None]
  - HAEMORRHAGE SUBCUTANEOUS [None]
